FAERS Safety Report 15584228 (Version 1)
Quarter: 2018Q4

REPORT INFORMATION
  Report Type: Spontaneous
  Country: US (occurrence: US)
  Receive Date: 20181104
  Receipt Date: 20181104
  Transmission Date: 20190205
  Serious: Yes (Other)
  Sender: FDA-Public Use
  Company Number: PHHY2018US141017

PATIENT
  Age: 59 Year
  Sex: Male

DRUGS (5)
  1. PREDNISONE. [Suspect]
     Active Substance: PREDNISONE
     Indication: HEART TRANSPLANT
     Route: 065
  2. TACROLIMUS. [Suspect]
     Active Substance: TACROLIMUS
     Indication: HEART TRANSPLANT
     Route: 065
  3. PREDNISONE. [Suspect]
     Active Substance: PREDNISONE
     Indication: RENAL TRANSPLANT
  4. TACROLIMUS. [Suspect]
     Active Substance: TACROLIMUS
     Indication: RENAL TRANSPLANT
  5. RITUXIMAB. [Concomitant]
     Active Substance: RITUXIMAB
     Indication: GLOMERULONEPHRITIS
     Dosage: 4 DF, UNK
     Route: 065

REACTIONS (10)
  - Product use in unapproved indication [Unknown]
  - Renal impairment [Unknown]
  - Mitral valve incompetence [Unknown]
  - Disease progression [Unknown]
  - Glomerulonephritis [Unknown]
  - Aortic valve incompetence [Unknown]
  - Q fever [Unknown]
  - Endocarditis [Unknown]
  - Proteinuria [Unknown]
  - Cardiac valve vegetation [Unknown]
